FAERS Safety Report 12515627 (Version 2)
Quarter: 2016Q3

REPORT INFORMATION
  Report Type: Report from Study
  Country: CN (occurrence: CN)
  Receive Date: 20160630
  Receipt Date: 20160815
  Transmission Date: 20161109
  Serious: Yes (Hospitalization)
  Sender: FDA-Public Use
  Company Number: CN-ASTELLAS-2015JP023871AA

PATIENT
  Age: 74 Year
  Sex: Male

DRUGS (15)
  1. ENZALUTAMIDE [Suspect]
     Active Substance: ENZALUTAMIDE
     Indication: HORMONE-REFRACTORY PROSTATE CANCER
     Route: 048
     Dates: start: 20141212, end: 20151125
  2. INSULIN [Concomitant]
     Active Substance: INSULIN NOS
     Dosage: 3U, ONCE DAILY
     Route: 058
     Dates: start: 20151127, end: 20151128
  3. INSULIN [Concomitant]
     Active Substance: INSULIN NOS
     Dosage: 3U, ONCE DAILY
     Route: 042
     Dates: start: 20151203, end: 20151209
  4. INSULIN [Concomitant]
     Active Substance: INSULIN NOS
     Indication: URINARY RETENTION
     Dosage: 8U, TOTAL DOSE
     Route: 058
     Dates: start: 20151124, end: 20151124
  5. ZOLADEX [Concomitant]
     Active Substance: GOSERELIN ACETATE
     Indication: PROSTATE CANCER
     Dosage: 3.6 MG, EVERY 4 WEEKS
     Route: 058
     Dates: start: 20140923
  6. ENZALUTAMIDE [Suspect]
     Active Substance: ENZALUTAMIDE
     Route: 048
     Dates: start: 20151209
  7. METFORMIN [Concomitant]
     Active Substance: METFORMIN HYDROCHLORIDE
     Indication: DIABETES MELLITUS
     Route: 048
     Dates: start: 2006
  8. INSULIN [Concomitant]
     Active Substance: INSULIN NOS
     Indication: DIABETES MELLITUS
     Dosage: 12U, EVERY MORNING+10U,EVERY MORNING, ONCE DAILY
     Route: 058
     Dates: start: 201402
  9. CEFIXIME. [Concomitant]
     Active Substance: CEFIXIME
     Indication: URINARY RETENTION
     Dosage: 0.5 G, TWICE DAILY
     Route: 048
     Dates: start: 20151113, end: 20151124
  10. INSULIN [Concomitant]
     Active Substance: INSULIN NOS
     Dosage: 8U, TOTAL DOSE
     Route: 058
     Dates: start: 20151126, end: 20151126
  11. ZOLEDRONIC ACID [Concomitant]
     Active Substance: ZOLEDRONIC ACID
     Indication: METASTASES TO BONE
     Route: 042
     Dates: start: 20140117
  12. TAMSULOSIN [Concomitant]
     Active Substance: TAMSULOSIN
     Dosage: 0.2 MG, UNKNOWN FREQ.
     Route: 048
     Dates: start: 20151202, end: 20151202
  13. UNKNOWNDRUG [Concomitant]
     Active Substance: UNSPECIFIED INGREDIENT
     Indication: URINARY RETENTION
     Route: 048
     Dates: start: 20151113, end: 20151124
  14. INSULIN [Concomitant]
     Active Substance: INSULIN NOS
     Route: 042
     Dates: start: 20151202, end: 20151202
  15. TAMSULOSIN [Concomitant]
     Active Substance: TAMSULOSIN
     Indication: URINARY RETENTION
     Dosage: 0.2 MG, ONCE DAILY
     Route: 048
     Dates: start: 20151113, end: 20151124

REACTIONS (2)
  - Chest discomfort [Recovering/Resolving]
  - Urinary retention [Recovered/Resolved]

NARRATIVE: CASE EVENT DATE: 20151124
